FAERS Safety Report 6835502-1 (Version None)
Quarter: 2010Q3

REPORT INFORMATION
  Report Type: 
  Country: None (occurrence: None)
  Receive Date: 20100713
  Receipt Date: 20100629
  Transmission Date: 20110219
  Serious: Yes (Hospitalization, Other)
  Sender: FDA-Public Use
  Company Number: PHBS2006BR15576

PATIENT
  Age: 40 Year
  Sex: Female
  Weight: 45 kg

DRUGS (9)
  1. ESTRADERM [Suspect]
     Indication: HORMONE REPLACEMENT THERAPY
     Dosage: 50 UG/DAY
     Route: 062
     Dates: start: 20060201, end: 20060701
  2. ESTREVA [Concomitant]
     Indication: HORMONE REPLACEMENT THERAPY
     Dosage: ONE APPLICATION DAILY
  3. SANDRENA [Concomitant]
     Indication: HORMONE REPLACEMENT THERAPY
     Dosage: ONE SACHE DAILY
     Route: 062
  4. OSSOPAN [Concomitant]
     Indication: OSTEOPOROSIS
     Dosage: 400 MG/DAY
     Route: 048
  5. INDERAL [Concomitant]
     Indication: CARDIAC DISORDER
     Dosage: 40 MG, BID
  6. CALCIUM [Concomitant]
  7. ENDOVENOUS GLYCATED SALINE SOLUTION [Concomitant]
  8. PROFENID [Concomitant]
  9. CLEFIN [Concomitant]

REACTIONS (18)
  - ADENOMYOSIS [None]
  - AORTIC VALVE INCOMPETENCE [None]
  - CARDIAC DISORDER [None]
  - CARDIAC MURMUR [None]
  - CONDITION AGGRAVATED [None]
  - DEPRESSION [None]
  - DRUG INEFFECTIVE [None]
  - ERYTHEMA [None]
  - FEELING HOT [None]
  - HAEMORRHAGE [None]
  - INSOMNIA [None]
  - MALAISE [None]
  - MIGRAINE [None]
  - MITRAL VALVE INCOMPETENCE [None]
  - OPERATIVE HAEMORRHAGE [None]
  - TACHYCARDIA [None]
  - UTERINE OPERATION [None]
  - VISUAL ACUITY REDUCED [None]
